FAERS Safety Report 16661439 (Version 1)
Quarter: 2019Q3

REPORT INFORMATION
  Report Type: Spontaneous
  Country: US (occurrence: US)
  Receive Date: 20190802
  Receipt Date: 20190802
  Transmission Date: 20191004
  Serious: No
  Sender: FDA-Public Use
  Company Number: US-PFIZER INC-2019331128

PATIENT
  Age: 78 Year
  Sex: Female
  Weight: 58.6 kg

DRUGS (3)
  1. LYRICA [Suspect]
     Active Substance: PREGABALIN
     Dosage: 175 MG, UNK
  2. LYRICA [Suspect]
     Active Substance: PREGABALIN
     Indication: FIBROMYALGIA
     Dosage: 225 MG, UNK
  3. LYRICA [Suspect]
     Active Substance: PREGABALIN
     Dosage: 150 MG, 2X/DAY
     Route: 048

REACTIONS (5)
  - Therapeutic response unexpected [Unknown]
  - Auditory disorder [Not Recovered/Not Resolved]
  - Nervousness [Unknown]
  - Intentional product misuse [Unknown]
  - Pre-existing condition improved [Unknown]
